FAERS Safety Report 15731175 (Version 2)
Quarter: 2019Q1

REPORT INFORMATION
  Report Type: Spontaneous
  Country: GB (occurrence: GB)
  Receive Date: 20181217
  Receipt Date: 20190103
  Transmission Date: 20190417
  Serious: Yes (Death, Other)
  Sender: FDA-Public Use
  Company Number: GB-JNJFOC-20181109551

PATIENT

DRUGS (2)
  1. DARATUMUMAB [Suspect]
     Active Substance: DARATUMUMAB
     Indication: PRODUCT USED FOR UNKNOWN INDICATION
     Dosage: DISCONTINUED AFTER 400 MLS.
     Route: 042
     Dates: start: 20180925
  2. DARATUMUMAB [Suspect]
     Active Substance: DARATUMUMAB
     Indication: PRODUCT USED FOR UNKNOWN INDICATION
     Route: 042
     Dates: start: 20180911

REACTIONS (6)
  - Red blood cell agglutination [Recovered/Resolved]
  - Coombs indirect test positive [Recovered/Resolved]
  - Chills [Unknown]
  - Death [Fatal]
  - Coombs direct test positive [Unknown]
  - Crossmatch incompatible [Unknown]
